FAERS Safety Report 8787040 (Version 2)
Quarter: 2013Q1

REPORT INFORMATION
  Report Type: Spontaneous
  Country: GB (occurrence: CA)
  Receive Date: 20120914
  Receipt Date: 20130107
  Transmission Date: 20140127
  Serious: Yes (Life-Threatening, Hospitalization, Disabling)
  Sender: FDA-Public Use
  Company Number: PHHY2012GB079818

PATIENT
  Age: 60 Year
  Sex: Male

DRUGS (40)
  1. CYCLOPHOSPHAMIDE [Suspect]
     Indication: DIFFUSE LARGE B-CELL LYMPHOMA
     Dosage: 1770 MG, UNK
     Route: 042
     Dates: start: 20111205
  2. DOXORUBICIN [Suspect]
     Indication: DIFFUSE LARGE B-CELL LYMPHOMA
     Dosage: 118 MG
     Route: 042
  3. VINCRISTINE [Suspect]
     Indication: DIFFUSE LARGE B-CELL LYMPHOMA
     Dosage: 2 MG
     Route: 042
  4. PREDNISOLONE [Suspect]
     Indication: DIFFUSE LARGE B-CELL LYMPHOMA
     Route: 048
  5. OBINUTUZUMAB [Suspect]
     Indication: DIFFUSE LARGE B-CELL LYMPHOMA
     Dosage: 100 ML
     Route: 042
  6. AVAPRO [Concomitant]
  7. VITAMIN B12 [Concomitant]
  8. SULFADIAZINE [Concomitant]
  9. KETOROLAC [Concomitant]
  10. COLCHICINE [Concomitant]
  11. FENTANYL [Concomitant]
  12. MORPHINE [Concomitant]
     Dates: start: 20111118
  13. HEPARIN SODIUM [Concomitant]
  14. POTASSIUM CHLORIDE [Concomitant]
  15. SODIUM CHLORIDE [Concomitant]
  16. MOMETASONE [Concomitant]
  17. ASCORBIC ACID [Concomitant]
  18. ENOXAPARIN [Concomitant]
  19. OXYCOCET [Concomitant]
  20. GRANISETRON [Concomitant]
  21. RANITIDINE [Concomitant]
  22. DIPHENHYDRAMINE [Concomitant]
  23. ACETAMINOPHEN [Concomitant]
  24. CHOLECALCIFEROL [Concomitant]
  25. GLUCOSAMINE SULFATE [Concomitant]
  26. OXYCODONE [Concomitant]
  27. SOLU-MEDROL [Concomitant]
     Dates: start: 20111216, end: 20111216
  28. HUMULIN [Concomitant]
  29. SAXAGLIPTIN [Concomitant]
  30. PIOGLITAZONE [Concomitant]
  31. METFORMIN [Concomitant]
  32. ALEVE [Concomitant]
     Dates: start: 20111108
  33. INSULIN HUMAN [Concomitant]
  34. CRESTOR [Concomitant]
  35. CLAVULIN [Concomitant]
  36. FENOFIBRATE [Concomitant]
  37. FLUDROCORTISONE [Concomitant]
  38. HYDROCORTISONE [Concomitant]
  39. POTASSIUM CLAVULANATE [Concomitant]
  40. AMOXICILLIN TRIHYDRATE [Concomitant]

REACTIONS (23)
  - Acute myocardial infarction [Not Recovered/Not Resolved]
  - Cardiomyopathy [Not Recovered/Not Resolved]
  - Left ventricular dysfunction [Unknown]
  - Hypotension [Recovered/Resolved]
  - Pericardial effusion [Unknown]
  - Fatigue [Recovering/Resolving]
  - Cellulitis [Recovered/Resolved]
  - Chills [Recovering/Resolving]
  - Pyrexia [Recovered/Resolved]
  - Constipation [Not Recovered/Not Resolved]
  - Adrenal insufficiency [Recovered/Resolved]
  - White blood cell count decreased [Recovered/Resolved]
  - Atelectasis [Unknown]
  - Addison^s disease [Unknown]
  - Malaise [Unknown]
  - Erythema [Unknown]
  - Swelling [Unknown]
  - Abdominal symptom [Unknown]
  - Pleural effusion [Unknown]
  - Condition aggravated [Unknown]
  - Febrile neutropenia [Recovered/Resolved]
  - Electrocardiogram QT prolonged [Unknown]
  - Haemoglobin decreased [Unknown]
